FAERS Safety Report 19186445 (Version 12)
Quarter: 2024Q2

REPORT INFORMATION
  Report Type: Spontaneous
  Country: US (occurrence: US)
  Receive Date: 20210427
  Receipt Date: 20240527
  Transmission Date: 20240716
  Serious: Yes (Other)
  Sender: FDA-Public Use
  Company Number: US-PFIZER INC-2021353334

PATIENT
  Age: 65 Year
  Sex: Female

DRUGS (3)
  1. ESTRING [Suspect]
     Active Substance: ESTRADIOL
     Indication: Vulvovaginal dryness
     Dosage: UNK
     Dates: start: 2008
  2. ESTRING [Suspect]
     Active Substance: ESTRADIOL
     Indication: Radiation injury
  3. ESTRING [Suspect]
     Active Substance: ESTRADIOL
     Indication: Pain

REACTIONS (6)
  - Vulvovaginal pain [Unknown]
  - Off label use [Unknown]
  - Drug effective for unapproved indication [Unknown]
  - Contraindicated product administered [Unknown]
  - Feeling abnormal [Unknown]
  - Intentional device use issue [Unknown]
